FAERS Safety Report 9972167 (Version 1)
Quarter: 2014Q1

REPORT INFORMATION
  Report Type: Spontaneous
  Country: CA (occurrence: None)
  Receive Date: 20140304
  Receipt Date: 20140304
  Transmission Date: 20141002
  Serious: Yes (Hospitalization)
  Sender: FDA-Public Use
  Company Number: FK201400627

PATIENT
  Age: 14 Year
  Sex: Male

DRUGS (7)
  1. VANCOMYCIN HYDROCHLORIDE [Suspect]
     Indication: PRODUCT USED FOR UNKNOWN INDICATION
     Dosage: 1.5 GM, 1 EVERY 6 HOURS, INTRAVENOUS
     Route: 042
  2. CEFOTAXIME [Suspect]
     Indication: PRODUCT USED FOR UNKNOWN INDICATION
     Dosage: 2 GM, 1 EVERY 6 HOURS, INTRAVENOUS
     Route: 042
  3. ACETAMINOPHEN (PARACETAMOL) [Concomitant]
  4. METRONIDAZOLE [Concomitant]
  5. MOMETASONE FUROATE [Concomitant]
  6. MORPHINE [Concomitant]
  7. ONDANSETRON [Concomitant]

REACTIONS (10)
  - Diplopia [None]
  - Exophthalmos [None]
  - Eye disorder [None]
  - Eye swelling [None]
  - Headache [None]
  - Vomiting [None]
  - Pruritus [None]
  - Pyrexia [None]
  - Rash [None]
  - Skin plaque [None]
